FAERS Safety Report 11969532 (Version 2)
Quarter: 2016Q1

REPORT INFORMATION
  Report Type: Spontaneous
  Country: JP (occurrence: JP)
  Receive Date: 20160128
  Receipt Date: 20160217
  Transmission Date: 20160526
  Serious: Yes (Other)
  Sender: FDA-Public Use
  Company Number: JP-ACTAVIS-2016-00711

PATIENT
  Age: 51 Year
  Sex: Female
  Weight: 142 kg

DRUGS (8)
  1. 5-FLUOROURACIL                     /00098801/ [Suspect]
     Active Substance: FLUOROURACIL
     Dosage: CYCLICAL
     Route: 065
  2. MEDROXYPROGESTERONE [Suspect]
     Active Substance: MEDROXYPROGESTERONE
     Indication: BREAST CANCER STAGE IV
     Dosage: 1200 MG, DAILY
     Route: 048
  3. EPIRUBICIN (UNKNOWN) [Suspect]
     Active Substance: EPIRUBICIN
     Indication: BREAST CANCER STAGE IV
     Dosage: CYCLICAL, 10 CYCLES
     Route: 042
     Dates: start: 19981110
  4. DOXIFLURIDINE [Suspect]
     Active Substance: DOXIFLURIDINE
     Indication: BREAST CANCER STAGE IV
     Dosage: 600 MG, DAILY
     Route: 048
  5. 5-FLUOROURACIL                     /00098801/ [Suspect]
     Active Substance: FLUOROURACIL
     Indication: BREAST CANCER STAGE IV
     Dosage: 500 MG/DAY, CYCLICAL,
     Route: 065
  6. CYCLOPHOSPHAMIDE. [Suspect]
     Active Substance: CYCLOPHOSPHAMIDE
     Indication: BREAST CANCER STAGE IV
     Dosage: 100 MG/DAY, CYCLICAL, 2 WEEKS THERAPY 2 WEEKS REST
     Route: 065
  7. MEDROXYPROGESTERONE [Suspect]
     Active Substance: MEDROXYPROGESTERONE
     Dosage: 600 MG, DAILY
     Route: 048
  8. TAMOXIFEN [Concomitant]
     Active Substance: TAMOXIFEN
     Indication: BREAST CANCER STAGE IV
     Dosage: 20 MG, DAILY
     Route: 048

REACTIONS (4)
  - Alopecia [Recovering/Resolving]
  - Weight increased [Recovering/Resolving]
  - Leukopenia [Recovering/Resolving]
  - Bone marrow failure [Unknown]
